FAERS Safety Report 20292032 (Version 3)
Quarter: 2022Q1

REPORT INFORMATION
  Report Type: Report from Study
  Country: CA (occurrence: CA)
  Receive Date: 20220104
  Receipt Date: 20220311
  Transmission Date: 20220423
  Serious: Yes (Hospitalization, Other)
  Sender: FDA-Public Use
  Company Number: CA-JNJFOC-20211122548

PATIENT
  Age: 70 Year
  Sex: Male

DRUGS (1)
  1. SIMPONI [Suspect]
     Active Substance: GOLIMUMAB
     Indication: Rheumatoid arthritis
     Route: 058
     Dates: start: 20200703

REACTIONS (8)
  - Infection [Unknown]
  - Angioplasty [Unknown]
  - Diabetic ulcer [Unknown]
  - Parkinson^s disease [Unknown]
  - Diabetes mellitus [Unknown]
  - Rheumatoid arthritis [Recovering/Resolving]
  - Off label use [Unknown]
  - Product use issue [Unknown]
